FAERS Safety Report 20144301 (Version 1)
Quarter: 2021Q4

REPORT INFORMATION
  Report Type: Spontaneous
  Country: US (occurrence: None)
  Receive Date: 20211202
  Receipt Date: 20211202
  Transmission Date: 20220303
  Serious: Yes (Hospitalization)
  Sender: FDA-Public Use
  Company Number: None

PATIENT
  Sex: Male

DRUGS (1)
  1. TADALAFIL [Suspect]
     Active Substance: TADALAFIL
     Indication: Cardiac assistance device user
     Dosage: TAKE 2 TABLETS (40MG TOTAL) BY MOUTH DAILY
     Route: 048
     Dates: start: 20181018

REACTIONS (2)
  - Haemorrhagic disorder [None]
  - Ventricular assist device insertion [None]
